FAERS Safety Report 4462801-3 (Version None)
Quarter: 2004Q3

REPORT INFORMATION
  Report Type: 
  Country: None (occurrence: None)
  Receive Date: 20040927
  Receipt Date: 20040915
  Transmission Date: 20050211
  Serious: Yes (Other)
  Sender: FDA-Public Use
  Company Number: HQWYE117220SEP04

PATIENT

DRUGS (1)
  1. MYLOTARG [Suspect]
     Indication: ACUTE MYELOID LEUKAEMIA
     Dosage: 9 MG/M^2 14 DAYS APART, TOTAL OF TWO DOSES, INTRAVENOUS)
     Route: 042

REACTIONS (7)
  - HEPATIC CONGESTION [None]
  - HEPATOMEGALY [None]
  - HEPATOTOXICITY [None]
  - LIVER DISORDER [None]
  - OEDEMA [None]
  - SINUS DISORDER [None]
  - VENOOCCLUSIVE LIVER DISEASE [None]
